FAERS Safety Report 24134257 (Version 2)
Quarter: 2024Q3

REPORT INFORMATION
  Report Type: Report from Study
  Country: US (occurrence: US)
  Receive Date: 20240724
  Receipt Date: 20240820
  Transmission Date: 20241017
  Serious: Yes (Other)
  Sender: ABBVIE
  Company Number: US-ABBVIE-5813658

PATIENT
  Age: 65 Year
  Sex: Female
  Weight: 77.11 kg

DRUGS (10)
  1. RINVOQ [Suspect]
     Active Substance: UPADACITINIB
     Indication: Crohn^s disease
     Dosage: FORM STRENGTH: 45 MILLIGRAM
     Route: 048
     Dates: start: 20230915, end: 202312
  2. RINVOQ [Suspect]
     Active Substance: UPADACITINIB
     Indication: Crohn^s disease
     Dosage: FORM STRENGTH: 30 MILLIGRAM
     Route: 048
     Dates: start: 202312
  3. ZENPEP [Concomitant]
     Active Substance: PANCRELIPASE AMYLASE\PANCRELIPASE LIPASE\PANCRELIPASE PROTEASE
     Indication: Product used for unknown indication
  4. ZYRTEC [Concomitant]
     Active Substance: CETIRIZINE HYDROCHLORIDE
     Indication: Hypersensitivity
  5. FISH OIL [Concomitant]
     Active Substance: FISH OIL
     Indication: Supplementation therapy
  6. PROLIA [Concomitant]
     Active Substance: DENOSUMAB
     Indication: Osteopenia
  7. VITAMIN A [Concomitant]
     Active Substance: VITAMIN A
     Indication: Vitamin supplementation
  8. LOSARTAN [Concomitant]
     Active Substance: LOSARTAN\LOSARTAN POTASSIUM
     Indication: Blood pressure abnormal
  9. VITAMIN D [Concomitant]
     Active Substance: VITAMIN D NOS
     Indication: Vitamin supplementation
  10. GINGKO M [Concomitant]
     Indication: Phytotherapy

REACTIONS (11)
  - Cholecystectomy [Unknown]
  - Crohn^s disease [Unknown]
  - Abnormal faeces [Not Recovered/Not Resolved]
  - Defaecation urgency [Not Recovered/Not Resolved]
  - Arthralgia [Not Recovered/Not Resolved]
  - Drug ineffective [Unknown]
  - Dysphonia [Recovering/Resolving]
  - Pain in extremity [Not Recovered/Not Resolved]
  - Post procedural complication [Unknown]
  - Polyp [Recovering/Resolving]
  - Vocal cord disorder [Unknown]

NARRATIVE: CASE EVENT DATE: 20240501
